FAERS Safety Report 4753429-6 (Version None)
Quarter: 2005Q3

REPORT INFORMATION
  Report Type: 
  Country: None (occurrence: None)
  Receive Date: 20050823
  Receipt Date: 20050812
  Transmission Date: 20060218
  Serious: Yes (Hospitalization)
  Sender: FDA-Public Use
  Company Number: 216757

PATIENT
  Age: 75 Year
  Sex: Male
  Weight: 70 kg

DRUGS (10)
  1. AVASTIN [Suspect]
     Indication: COLORECTAL CANCER METASTATIC
     Dosage: 10 MG/KG, Q2W, INTRAVENOUS
     Route: 042
     Dates: start: 20050725
  2. OXALIPLATIN (OXALIPLATIN) [Suspect]
     Indication: COLORECTAL CANCER METASTATIC
     Dosage: 85, INTRAVENOUS
     Route: 042
  3. CAPECITABINE (CAPECITABINE) [Suspect]
     Indication: COLORECTAL CANCER METASTATIC
     Dosage: 850 MG/M2, 5/WEEK, ORAL
     Route: 048
     Dates: start: 20050725
  4. HYDROCODONE BITARTRATE + ACETAMINOPHEN (ACETAMINOPHEN, HYDROCODONE, BI [Concomitant]
  5. ZANTAC [Concomitant]
  6. FIBERCON (CALCIUM POLYCARBOPHIL) [Concomitant]
  7. DOCUSATE SODIUM (DOCUSATE SODIUM) [Concomitant]
  8. GLYCERIN (GLYCERIN) [Concomitant]
  9. ZOFRAN [Concomitant]
  10. OXYCONTIN [Concomitant]

REACTIONS (5)
  - CATHETER RELATED COMPLICATION [None]
  - CHILLS [None]
  - DIARRHOEA [None]
  - NAUSEA [None]
  - PYREXIA [None]
